FAERS Safety Report 22309676 (Version 3)
Quarter: 2024Q3

REPORT INFORMATION
  Report Type: Report from Study
  Country: US (occurrence: US)
  Receive Date: 20230511
  Receipt Date: 20240812
  Transmission Date: 20241016
  Serious: No
  Sender: NOVARTIS
  Company Number: US-002147023-NVSC2023US106069

PATIENT
  Sex: Male

DRUGS (2)
  1. COSENTYX [Suspect]
     Active Substance: SECUKINUMAB
     Indication: Psoriasis
     Dosage: UNK
     Route: 065
  2. COSENTYX [Suspect]
     Active Substance: SECUKINUMAB
     Dosage: 300 MG, QW
     Route: 058

REACTIONS (6)
  - Psoriasis [Unknown]
  - Acrochordon [Unknown]
  - Papule [Unknown]
  - Skin exfoliation [Unknown]
  - Erythema [Unknown]
  - Inappropriate schedule of product administration [Unknown]
